FAERS Safety Report 16574078 (Version 1)
Quarter: 2019Q3

REPORT INFORMATION
  Report Type: Report from Study
  Country: US (occurrence: US)
  Receive Date: 20190715
  Receipt Date: 20190715
  Transmission Date: 20191004
  Serious: No
  Sender: FDA-Public Use
  Company Number: US-ALEXION PHARMACEUTICALS INC.-A201910277

PATIENT
  Age: 60 Year
  Sex: Female

DRUGS (2)
  1. SOLIRIS [Suspect]
     Active Substance: ECULIZUMAB
     Indication: MYASTHENIA GRAVIS
     Dosage: 900 MG, QW
     Route: 042
     Dates: start: 20190610, end: 20190618
  2. SOLIRIS [Suspect]
     Active Substance: ECULIZUMAB
     Dosage: UNK

REACTIONS (1)
  - Gingivitis [Recovered/Resolved]

NARRATIVE: CASE EVENT DATE: 20190626
